FAERS Safety Report 5690068-7 (Version None)
Quarter: 2008Q2

REPORT INFORMATION
  Report Type: 
  Country: None (occurrence: None)
  Receive Date: 20080401
  Receipt Date: 20080326
  Transmission Date: 20081010
  Serious: Yes (Other)
  Sender: FDA-Public Use
  Company Number: PHHY2008AU03842

PATIENT

DRUGS (1)
  1. SIMULECT [Suspect]
     Indication: RENAL TRANSPLANT
     Route: 042

REACTIONS (2)
  - BLOOD PRESSURE DECREASED [None]
  - MYOCARDIAL INFARCTION [None]
